FAERS Safety Report 9034301 (Version 1)
Quarter: 2013Q1

REPORT INFORMATION
  Report Type: Spontaneous
  Country: US (occurrence: None)
  Receive Date: 20130116
  Receipt Date: 20130116
  Transmission Date: 20140127
  Serious: Yes (Other)
  Sender: FDA-Public Use
  Company Number: None

PATIENT
  Age: 65 Year
  Sex: Female
  Weight: 63.5 kg

DRUGS (2)
  1. ATORVASTATIN [Suspect]
     Route: 048
     Dates: start: 20121016, end: 20121112
  2. CRESTOR [Suspect]
     Route: 048
     Dates: start: 20130101, end: 20130106

REACTIONS (2)
  - Hypoaesthesia [None]
  - Movement disorder [None]
